FAERS Safety Report 5498249-2 (Version None)
Quarter: 2007Q4

REPORT INFORMATION
  Report Type: 
  Country: None (occurrence: None)
  Receive Date: 20071025
  Receipt Date: 20070419
  Transmission Date: 20080405
  Serious: No
  Sender: FDA-Public Use
  Company Number: A0648011A

PATIENT
  Age: 82 Year
  Sex: Female

DRUGS (7)
  1. ADVAIR DISKUS 100/50 [Suspect]
     Indication: DRUG USE FOR UNKNOWN INDICATION
     Dosage: 1PUFF TWICE PER DAY
     Route: 055
  2. METAGLIP [Concomitant]
  3. CALAN [Concomitant]
  4. HYZAAR [Concomitant]
  5. NASONEX [Concomitant]
  6. ATROVENT [Concomitant]
  7. LIPITOR [Concomitant]

REACTIONS (1)
  - ALOPECIA [None]
